FAERS Safety Report 9574444 (Version 2)
Quarter: 2013Q4

REPORT INFORMATION
  Report Type: Spontaneous
  Country: CA (occurrence: CA)
  Receive Date: 20131001
  Receipt Date: 20131001
  Transmission Date: 20140711
  Serious: Yes (Death, Hospitalization, Other)
  Sender: FDA-Public Use
  Company Number: CA-BAXTER-2013BAX036711

PATIENT
  Age: 56 Year
  Sex: Male

DRUGS (3)
  1. DIANEAL PD4 SOLUTION WITH 1.5% DEXTROSE AND 2.5 MEQ/L CALCIUM [Suspect]
     Indication: PERITONEAL DIALYSIS
     Route: 033
     Dates: start: 201201
  2. DIANEAL PD4 SOLUTION WITH 2.5% DEXTROSE AND 2.5 MEQ/L CALCIUM [Suspect]
     Indication: PERITONEAL DIALYSIS
     Dosage: 2 BAGS
     Route: 033
     Dates: start: 201201
  3. EXTRANEAL [Suspect]
     Indication: PERITONEAL DIALYSIS
     Dosage: 1 BAG
     Route: 033
     Dates: start: 201201

REACTIONS (11)
  - Death [Fatal]
  - Loss of consciousness [Unknown]
  - Concomitant disease progression [Unknown]
  - Staphylococcal infection [Unknown]
  - Medical induction of coma [Not Recovered/Not Resolved]
  - Cerebrovascular accident [Unknown]
  - Disease complication [Unknown]
  - Asthenia [Unknown]
  - Dyspepsia [Unknown]
  - General physical health deterioration [Unknown]
  - Catheter site infection [Unknown]
